FAERS Safety Report 9520479 (Version 2)
Quarter: 2013Q3

REPORT INFORMATION
  Report Type: Report from Study
  Country: KR (occurrence: KR)
  Receive Date: 20130913
  Receipt Date: 20130918
  Transmission Date: 20140515
  Serious: Yes (Hospitalization)
  Sender: FDA-Public Use
  Company Number: KR-009507513-1309KOR003889

PATIENT
  Age: 61 Year
  Sex: Female
  Weight: 79 kg

DRUGS (10)
  1. SITAGLIPTIN PHOSPHATE [Suspect]
     Indication: TYPE 2 DIABETES MELLITUS
     Dosage: 100MG, 1 DAY
     Route: 048
     Dates: start: 20081212, end: 20090104
  2. LEVEMIR [Concomitant]
     Indication: BLOOD GLUCOSE INCREASED
     Dosage: 8 IU, QD
     Route: 058
     Dates: start: 20080612, end: 20091228
  3. DICAMAX [Concomitant]
     Indication: MINERAL SUPPLEMENTATION
     Dosage: TOTAL DAILY DOSE 1000MG
     Route: 048
     Dates: start: 20080814
  4. DICHLOZID [Concomitant]
     Indication: HYPERTENSION
     Dosage: TOTAL DAILY DOSE 12.5MG
     Route: 048
     Dates: start: 20060124
  5. ATACAND [Concomitant]
     Indication: HYPERTENSION
     Dosage: TOTAL DAILY DOSE 8MG
     Route: 048
     Dates: start: 20080814
  6. VALIUM [Concomitant]
     Indication: DEPRESSION
     Dosage: TOTAL DAILY DOSE 4MG
     Route: 048
     Dates: start: 20080814
  7. AMODIPIN [Concomitant]
     Indication: HYPERTENSION
     Dosage: TOTAL DAILY DOSE 10MG
     Route: 048
     Dates: start: 20080911
  8. VESSEL DUE F [Concomitant]
     Indication: HYPERLIPIDAEMIA
     Dosage: TOTAL DAILY DOSE 500LSU
     Route: 048
     Dates: start: 20080911
  9. ANPLAG [Concomitant]
     Indication: NEURALGIA
     Dosage: TOTAL DAILY DOSE 200MG
     Route: 048
  10. NEURONTIN [Concomitant]
     Indication: NEURALGIA
     Dosage: TOTAL DAILY DOSE 1200MG
     Route: 048
     Dates: start: 20050711

REACTIONS (1)
  - Diabetic complication [Recovered/Resolved]
